FAERS Safety Report 7245803-3 (Version None)
Quarter: 2011Q1

REPORT INFORMATION
  Report Type: 
  Country: None (occurrence: None)
  Receive Date: 20110118
  Receipt Date: 20110105
  Transmission Date: 20110831
  Serious: No
  Sender: FDA-Public Use
  Company Number: 11-005

PATIENT
  Age: 46 Year
  Sex: Male

DRUGS (6)
  1. GARLIC [Suspect]
     Dosage: ORAL, DURATION SEVERAL YEARS FOR HERBS
     Route: 048
  2. ACETAMINOPHEN [Suspect]
     Indication: ANALGESIC THERAPY
     Dosage: 1 G, ORAL, UNKNOWN DURATION FOR ANALGESICS
     Route: 048
  3. IBUPROFEN [Suspect]
     Indication: ANALGESIC THERAPY
     Dosage: 400 MG, ORAL, UNKNOWN DURATION FOR ANALGESICS
     Route: 048
  4. GINGKGO BILOBA [Suspect]
     Dosage: ORAL, DURATION SEVERAL YEARS FOR HERBS
     Route: 048
  5. GINSENG [Suspect]
     Dosage: ORAL, DURATION SEVERAL YEARS FOR HERBS
     Route: 048
  6. GINGER [Suspect]
     Dosage: ORAL, DURATION SEVERAL YEARS FOR HERBS
     Route: 048

REACTIONS (3)
  - COAGULOPATHY [None]
  - DRUG INTERACTION [None]
  - POST PROCEDURAL HAEMORRHAGE [None]
